FAERS Safety Report 9311002 (Version 4)
Quarter: 2013Q4

REPORT INFORMATION
  Report Type: Report from Study
  Country: CA (occurrence: CA)
  Receive Date: 20130528
  Receipt Date: 20131118
  Transmission Date: 20140711
  Serious: Yes (Hospitalization, Other)
  Sender: FDA-Public Use
  Company Number: CA-JNJFOC-20130513587

PATIENT
  Age: 45 Year
  Sex: Male
  Weight: 69.85 kg

DRUGS (6)
  1. REMICADE [Suspect]
     Indication: CROHN^S DISEASE
     Dosage: TOTAL INFUSION RECEIVED: 15
     Route: 042
     Dates: start: 20110506, end: 20130912
  2. REMICADE [Suspect]
     Indication: CROHN^S DISEASE
     Dosage: INDUCTION 2ND INFUSION
     Route: 042
     Dates: start: 20130516
  3. REMICADE [Suspect]
     Indication: CROHN^S DISEASE
     Dosage: 1ST INFUSION AFTER RESTARTING INFLIXIMAB
     Route: 042
     Dates: start: 20130430
  4. REMICADE [Suspect]
     Indication: CROHN^S DISEASE
     Route: 042
  5. REMICADE [Suspect]
     Indication: CROHN^S DISEASE
     Route: 042
     Dates: start: 201208, end: 201208
  6. REMICADE [Suspect]
     Indication: CROHN^S DISEASE
     Dosage: INDUCTION SECOND DOSE.
     Route: 042
     Dates: start: 2011

REACTIONS (13)
  - Intestinal obstruction [Recovered/Resolved]
  - Secretion discharge [Recovered/Resolved]
  - Drug specific antibody present [Unknown]
  - Abdominal mass [Recovered/Resolved]
  - Abdominal pain [Unknown]
  - Muscle spasms [Recovering/Resolving]
  - Infusion related reaction [Recovering/Resolving]
  - Hypertension [Recovered/Resolved]
  - Laryngeal oedema [Recovered/Resolved]
  - Hypotension [Recovering/Resolving]
  - Dysphagia [Recovering/Resolving]
  - Palpitations [Recovered/Resolved]
  - Back pain [Recovered/Resolved]
